FAERS Safety Report 4307291-6 (Version None)
Quarter: 2004Q1

REPORT INFORMATION
  Report Type: 
  Country: None (occurrence: None)
  Receive Date: 20040227
  Receipt Date: 20040224
  Transmission Date: 20041129
  Serious: Yes (Hospitalization)
  Sender: FDA-Public Use
  Company Number: WAES 0402FRA00075

PATIENT
  Age: 81 Year
  Sex: Female

DRUGS (2)
  1. CETIRIZINE HCL [Suspect]
     Route: 048
     Dates: start: 20040205, end: 20040207
  2. PRIMAXIN [Suspect]
     Route: 041
     Dates: start: 20040205, end: 20040207

REACTIONS (3)
  - COUGH [None]
  - FACE OEDEMA [None]
  - RASH ERYTHEMATOUS [None]
